FAERS Safety Report 10215174 (Version 1)
Quarter: 2014Q2

REPORT INFORMATION
  Report Type: Spontaneous
  Country: FR (occurrence: FR)
  Receive Date: 20140603
  Receipt Date: 20140603
  Transmission Date: 20141212
  Serious: Yes (Other)
  Sender: FDA-Public Use
  Company Number: PHHY2014FR065416

PATIENT
  Age: 51 Year
  Sex: Female

DRUGS (4)
  1. AMOXICILLIN CLAVULANIC ACID SANDOZ [Suspect]
     Indication: ANTIBIOTIC PROPHYLAXIS
     Dosage: 2 G, UNK
     Route: 042
     Dates: start: 20140412, end: 20140412
  2. PROPOFOL FRESENIUS [Suspect]
     Indication: INDUCTION OF ANAESTHESIA
     Dosage: 400 MG, QD
     Route: 042
     Dates: start: 20140412, end: 20140412
  3. SUFENTANIL MERCK [Suspect]
     Indication: INDUCTION OF ANAESTHESIA
     Dosage: 40 UG, UNK
     Route: 042
     Dates: start: 20140412, end: 20140412
  4. BETADINE DERMIQUE [Suspect]
     Indication: INFECTION PROPHYLAXIS
     Dosage: 1 DF, UNK
     Route: 061
     Dates: start: 20140412, end: 20140412

REACTIONS (1)
  - Circulatory collapse [Recovered/Resolved]
